FAERS Safety Report 9525906 (Version 2)
Quarter: 2013Q4

REPORT INFORMATION
  Report Type: Spontaneous
  Country: US (occurrence: US)
  Receive Date: 20130915
  Receipt Date: 20131029
  Transmission Date: 20140711
  Serious: Yes (Hospitalization)
  Sender: FDA-Public Use
  Company Number: US-PFIZER INC-2013257149

PATIENT
  Age: 70 Year
  Sex: Male

DRUGS (10)
  1. TORISEL [Suspect]
     Indication: RENAL CANCER
     Dosage: UNK
     Route: 042
  2. VOTRIENT [Suspect]
     Indication: RENAL CANCER
     Dosage: 400 MG, 2X/DAY
     Route: 048
     Dates: start: 20130320
  3. COUMADIN [Concomitant]
     Dosage: UNK
  4. SIMVASTATIN [Concomitant]
     Dosage: UNK
  5. FRUSEMIDE [Concomitant]
     Dosage: UNK
  6. PAXIL [Concomitant]
     Dosage: UNK
  7. METFORMIN HYDROCHLORIDE [Concomitant]
     Dosage: UNK
  8. ALLOPURINOL [Concomitant]
     Dosage: UNK
  9. DULCOLAX [Concomitant]
     Dosage: UNK
  10. TRAZODONE [Concomitant]
     Dosage: UNK

REACTIONS (8)
  - Diarrhoea [Recovering/Resolving]
  - Muscle spasms [Recovering/Resolving]
  - Vomiting [Recovering/Resolving]
  - Asthenia [Recovering/Resolving]
  - Disease progression [Unknown]
  - Renal cancer [Unknown]
  - Drug administration error [Unknown]
  - Musculoskeletal discomfort [Unknown]
